FAERS Safety Report 7998873-9 (Version None)
Quarter: 2011Q4

REPORT INFORMATION
  Report Type: 
  Country: None (occurrence: None)
  Receive Date: 20111221
  Receipt Date: 20111216
  Transmission Date: 20120403
  Serious: Yes (Death)
  Sender: FDA-Public Use
  Company Number: US-GLAXOSMITHKLINE-A0944830A

PATIENT
  Age: 56 Year
  Sex: Male
  Weight: 48.2 kg

DRUGS (1)
  1. ZOFRAN [Suspect]
     Indication: NAUSEA
     Dosage: 8MG UNKNOWN
     Route: 065
     Dates: start: 20101006, end: 20110725

REACTIONS (2)
  - DISEASE PROGRESSION [None]
  - TRANSITIONAL CELL CARCINOMA [None]
